FAERS Safety Report 10192282 (Version 3)
Quarter: 2014Q2

REPORT INFORMATION
  Report Type: Report from Study
  Country: FR (occurrence: FR)
  Receive Date: 20140523
  Receipt Date: 20140611
  Transmission Date: 20141212
  Serious: Yes (Other)
  Sender: FDA-Public Use
  Company Number: PHHY2014FR062422

PATIENT
  Age: 41 Year
  Sex: Female

DRUGS (3)
  1. EXTAVIA [Suspect]
     Indication: MULTIPLE SCLEROSIS
     Dosage: 1 MG, QOD
     Route: 058
     Dates: start: 20111014, end: 20121018
  2. BACLOFEN [Concomitant]
     Dosage: UNK UKN, UNK
  3. LEVOTHYROX [Concomitant]
     Dosage: 100 UG, QD

REACTIONS (8)
  - Basedow^s disease [Recovered/Resolved]
  - Exophthalmos [Unknown]
  - Goitre [Unknown]
  - Blood thyroid stimulating hormone decreased [Unknown]
  - Peripheral swelling [Unknown]
  - Heart rate increased [Unknown]
  - Joint swelling [Unknown]
  - Weight decreased [Unknown]
